FAERS Safety Report 16225109 (Version 1)
Quarter: 2019Q2

REPORT INFORMATION
  Report Type: Spontaneous
  Country: FR (occurrence: FR)
  Receive Date: 20190422
  Receipt Date: 20190422
  Transmission Date: 20190711
  Serious: Yes (Hospitalization)
  Sender: FDA-Public Use
  Company Number: FR-BAUSCH-BL-2019-011537

PATIENT
  Age: 79 Year
  Sex: Male

DRUGS (2)
  1. OFLOXACINE [Suspect]
     Active Substance: OFLOXACIN
     Indication: BACTERIAL INFECTION
     Route: 065
     Dates: start: 20170911, end: 20170913
  2. CLOXACILLINE [Suspect]
     Active Substance: CLOXACILLIN
     Indication: IMPETIGO
     Route: 065
     Dates: start: 20170904, end: 20170914

REACTIONS (3)
  - Nephritis allergic [Recovered/Resolved]
  - Acute kidney injury [Recovered/Resolved]
  - Tubulointerstitial nephritis [Recovered/Resolved]

NARRATIVE: CASE EVENT DATE: 201709
